FAERS Safety Report 4708523-2 (Version None)
Quarter: 2005Q3

REPORT INFORMATION
  Report Type: 
  Country: None (occurrence: None)
  Receive Date: 20050707
  Receipt Date: 20050630
  Transmission Date: 20060218
  Serious: Yes (Disabling)
  Sender: FDA-Public Use
  Company Number: CA-GLAXOSMITHKLINE-A0565009A

PATIENT
  Age: 75 Year
  Sex: Male
  Weight: 84.1 kg

DRUGS (7)
  1. AVANDAMET [Suspect]
     Indication: DIABETES MELLITUS
     Route: 048
     Dates: start: 20050104
  2. LIPITOR [Concomitant]
     Indication: DYSLIPIDAEMIA
  3. ALTACE [Concomitant]
     Indication: HYPERTENSION
  4. ASPIRIN [Concomitant]
     Indication: THROMBOSIS PROPHYLAXIS
  5. ATIVAN [Concomitant]
     Indication: ANXIETY
  6. VITALUX [Concomitant]
     Indication: MACULAR DEGENERATION
  7. FLOMAX [Concomitant]

REACTIONS (3)
  - CONDITION AGGRAVATED [None]
  - MACULAR DEGENERATION [None]
  - VISUAL ACUITY REDUCED [None]
